FAERS Safety Report 8188228-9 (Version None)
Quarter: 2012Q1

REPORT INFORMATION
  Report Type: 
  Country: None (occurrence: None)
  Receive Date: 20120306
  Receipt Date: 20120104
  Transmission Date: 20120608
  Serious: Yes (Other)
  Sender: FDA-Public Use
  Company Number: US-BAYER-2011-124414

PATIENT
  Sex: Male
  Weight: 79.5 kg

DRUGS (4)
  1. SARGRAMOSTIM [Suspect]
     Indication: MALIGNANT MELANOMA
     Dosage: 250 ?G, QD DAYS 1-14
     Route: 058
     Dates: start: 20110422
  2. MDX-010 [Suspect]
     Indication: MALIGNANT MELANOMA
     Dosage: 10 MG/KG, ONCE DAY 1 OF 21 DAY CYCLE
     Route: 042
     Dates: start: 20110422, end: 20110422
  3. MDX-010 [Suspect]
     Dosage: 10 MG/KG, ONCE DAY 1 OF 21 DAY CYCLE
     Route: 042
     Dates: start: 20110916, end: 20110916
  4. SARGRAMOSTIM [Suspect]
     Dosage: 250 ?G, QD DAYS 1-14
     Route: 058
     Dates: start: 20110916, end: 20110929

REACTIONS (2)
  - COLITIS [None]
  - WEIGHT DECREASED [None]
